FAERS Safety Report 8968807 (Version 1)
Quarter: 2012Q4

REPORT INFORMATION
  Report Type: 
  Country: US (occurrence: US)
  Receive Date: 20121218
  Receipt Date: 20121218
  Transmission Date: 20130627
  Serious: No
  Sender: FDA-Public Use
  Company Number: US-BRISTOL-MYERS SQUIBB COMPANY-16356297

PATIENT
  Age: 22 Year
  Sex: Male

DRUGS (2)
  1. ABILIFY [Suspect]
     Indication: SCHIZOPHRENIA, PARANOID TYPE
     Dosage: 10-15mg
bed time
     Route: 048
     Dates: start: 20110905, end: 20111005
  2. TEGRETOL [Concomitant]
     Dates: start: 20081030

REACTIONS (1)
  - Akathisia [Recovered/Resolved]
